FAERS Safety Report 12990492 (Version 1)
Quarter: 2016Q4

REPORT INFORMATION
  Report Type: Spontaneous
  Country: PT (occurrence: PT)
  Receive Date: 20161201
  Receipt Date: 20161201
  Transmission Date: 20170207
  Serious: Yes (Death, Other)
  Sender: FDA-Public Use
  Company Number: PT-CELGENEUS-PRT-2016115536

PATIENT

DRUGS (2)
  1. THALIDOMIDE CELGENE [Suspect]
     Active Substance: THALIDOMIDE
     Indication: PLASMA CELL MYELOMA
  2. THALIDOMIDE CELGENE [Suspect]
     Active Substance: THALIDOMIDE
     Indication: PLASMA CELL MYELOMA
     Dosage: UNKNOWN
     Route: 048

REACTIONS (9)
  - Haemorrhage intracranial [Fatal]
  - Infection [Fatal]
  - Acute myocardial infarction [Fatal]
  - Hepatitis toxic [Fatal]
  - Chronic graft versus host disease [Unknown]
  - Multiple organ dysfunction syndrome [Fatal]
  - Acute graft versus host disease [Unknown]
  - Transplantation complication [Fatal]
  - Plasma cell myeloma [Fatal]
